FAERS Safety Report 5864839-8 (Version None)
Quarter: 2008Q3

REPORT INFORMATION
  Report Type: 
  Country: None (occurrence: None)
  Receive Date: 20080829
  Receipt Date: 20080827
  Transmission Date: 20090109
  Serious: Yes (Other)
  Sender: FDA-Public Use
  Company Number: A0745021A

PATIENT

DRUGS (1)
  1. NICORETTE [Suspect]

REACTIONS (1)
  - GASTRIC ULCER HAEMORRHAGE [None]
